FAERS Safety Report 4602450-7 (Version None)
Quarter: 2005Q1

REPORT INFORMATION
  Report Type: 
  Country: None (occurrence: None)
  Receive Date: 20050309
  Receipt Date: 20050303
  Transmission Date: 20050727
  Serious: Yes (Hospitalization)
  Sender: FDA-Public Use
  Company Number: US-JNJFOC-20050301226

PATIENT
  Sex: Male

DRUGS (3)
  1. DURAGESIC-100 [Suspect]
     Route: 062
  2. DURAGESIC-100 [Suspect]
     Route: 062
  3. PROTONIX [Concomitant]
     Indication: STOMACH DISCOMFORT

REACTIONS (6)
  - APPLICATION SITE DERMATITIS [None]
  - APPLICATION SITE ERYTHEMA [None]
  - BACK PAIN [None]
  - CHILLS [None]
  - HYPERHIDROSIS [None]
  - VOMITING [None]
